FAERS Safety Report 22818233 (Version 3)
Quarter: 2024Q2

REPORT INFORMATION
  Report Type: Spontaneous
  Country: US (occurrence: US)
  Receive Date: 20230814
  Receipt Date: 20240405
  Transmission Date: 20240716
  Serious: Yes (Hospitalization)
  Sender: FDA-Public Use
  Company Number: US-GLAXOSMITHKLINE-US2023107599

PATIENT
  Sex: Female
  Weight: 56.2 kg

DRUGS (2)
  1. ZEJULA [Suspect]
     Active Substance: NIRAPARIB
     Indication: Ovarian cancer
     Dosage: 200 MG, QD
     Route: 048
     Dates: start: 20230713
  2. ZEJULA [Suspect]
     Active Substance: NIRAPARIB
     Indication: Ovarian cancer
     Dosage: 100 MG, QD
     Dates: start: 20231023

REACTIONS (6)
  - Platelet count decreased [Unknown]
  - Somnolence [Unknown]
  - Abdominal discomfort [Unknown]
  - Reflux gastritis [Unknown]
  - Blood cholesterol increased [Unknown]
  - Product dose omission issue [Unknown]
